FAERS Safety Report 4944836-7 (Version None)
Quarter: 2006Q1

REPORT INFORMATION
  Report Type: 
  Country: None (occurrence: None)
  Receive Date: 20060315
  Receipt Date: 20050421
  Transmission Date: 20060701
  Serious: Yes (Hospitalization, Disabling)
  Sender: FDA-Public Use
  Company Number: US-MERCK-0504USA04259

PATIENT
  Age: 61 Year
  Sex: Female
  Weight: 86 kg

DRUGS (16)
  1. VIOXX [Suspect]
     Indication: BURSITIS
     Route: 048
     Dates: start: 19990101, end: 20010301
  2. VIOXX [Suspect]
     Route: 048
     Dates: end: 20010301
  3. METOPROLOL [Concomitant]
     Route: 048
  4. ZESTRIL [Concomitant]
     Route: 048
  5. ADALAT [Concomitant]
     Route: 048
  6. ZOLOFT [Concomitant]
     Route: 048
  7. NORVASC [Concomitant]
     Indication: CHEST PAIN
     Route: 065
  8. LASIX [Concomitant]
     Route: 065
  9. ASPIRIN [Concomitant]
     Indication: PROPHYLAXIS
     Route: 065
  10. ZOCOR [Concomitant]
     Indication: BLOOD CHOLESTEROL
     Route: 048
  11. ACETAMINOPHEN [Concomitant]
     Indication: PAIN
     Route: 065
  12. KLONOPIN [Concomitant]
     Route: 048
  13. PERCOCET [Concomitant]
     Indication: PAIN
     Route: 065
  14. PRILOSEC [Concomitant]
     Route: 048
  15. ALBUTEROL [Concomitant]
     Route: 065
  16. MAVIK [Concomitant]
     Route: 065

REACTIONS (36)
  - ANAEMIA [None]
  - ANGINA UNSTABLE [None]
  - ANKLE FRACTURE [None]
  - ASTHMA [None]
  - AZOTAEMIA [None]
  - BLOOD ALKALINE PHOSPHATASE INCREASED [None]
  - BLOOD CHOLESTEROL INCREASED [None]
  - CARDIAC DISORDER [None]
  - CARDIAC FAILURE CONGESTIVE [None]
  - CHEST DISCOMFORT [None]
  - CHEST PAIN [None]
  - CHOLECYSTITIS ACUTE [None]
  - CHRONIC OBSTRUCTIVE PULMONARY DISEASE [None]
  - CORONARY ARTERY DISEASE [None]
  - CORONARY ARTERY RESTENOSIS [None]
  - DIARRHOEA [None]
  - DIASTOLIC DYSFUNCTION [None]
  - GASTROOESOPHAGEAL REFLUX DISEASE [None]
  - GASTROOESOPHAGITIS [None]
  - HEADACHE [None]
  - HYPERLIPIDAEMIA [None]
  - HYPONATRAEMIA [None]
  - HYPOXIA [None]
  - INSOMNIA [None]
  - MUSCULOSKELETAL CHEST PAIN [None]
  - MYOCARDIAL INFARCTION [None]
  - MYOCARDIAL ISCHAEMIA [None]
  - NON-CARDIAC CHEST PAIN [None]
  - ORTHOSTATIC HYPOTENSION [None]
  - PNEUMONIA [None]
  - PULMONARY HYPERTENSION [None]
  - RESPIRATORY FAILURE [None]
  - STENT OCCLUSION [None]
  - STRESS [None]
  - VERTIGO [None]
  - VULVAR EROSION [None]
